FAERS Safety Report 5530277-0 (Version None)
Quarter: 2007Q4

REPORT INFORMATION
  Report Type: 
  Country: None (occurrence: None)
  Receive Date: 20071127
  Receipt Date: 20071127
  Transmission Date: 20080405
  Serious: Yes (Hospitalization)
  Sender: FDA-Public Use
  Company Number: None

PATIENT
  Age: 57 Year
  Sex: Female
  Weight: 53.978 kg

DRUGS (18)
  1. CUBICIN [Suspect]
     Indication: STAPHYLOCOCCAL BACTERAEMIA
     Dosage: 500MG DAILY IV
     Route: 042
     Dates: start: 20071101, end: 20071117
  2. LIPITOR [Concomitant]
  3. NEURONTIN [Concomitant]
  4. ASPIRIN [Concomitant]
  5. EFFEXOR [Concomitant]
  6. LEXAPRO [Concomitant]
  7. KEPPRA [Concomitant]
  8. AMBIEN [Concomitant]
  9. PREVACID [Concomitant]
  10. COUMADIN [Concomitant]
  11. DARVOCET [Concomitant]
  12. PRINIVIL [Concomitant]
  13. TRAZODONE HCL [Concomitant]
  14. RIFAMPIN [Concomitant]
  15. TOPAMAX [Concomitant]
  16. LASIX [Concomitant]
  17. GEODON [Concomitant]
  18. POTASSIUM CHLORIDE [Concomitant]

REACTIONS (2)
  - RENAL FAILURE ACUTE [None]
  - RHABDOMYOLYSIS [None]
